FAERS Safety Report 4636170-X (Version None)
Quarter: 2005Q2

REPORT INFORMATION
  Report Type: 
  Country: None (occurrence: None)
  Receive Date: 20050325
  Receipt Date: 20050114
  Transmission Date: 20051028
  Serious: No
  Sender: FDA-Public Use
  Company Number: USA040669304

PATIENT
  Age: 65 Year
  Sex: Female
  Weight: 68 kg

DRUGS (1)
  1. FORTEO [Suspect]
     Indication: OSTEOPOROSIS
     Dosage: 20 UG/1 DAY
     Dates: start: 20040604

REACTIONS (6)
  - ANXIETY [None]
  - BLOOD CALCIUM [None]
  - DEPRESSION [None]
  - FATIGUE [None]
  - INJECTION SITE DISCOLOURATION [None]
  - PRURITUS [None]
